FAERS Safety Report 18419782 (Version 1)
Quarter: 2020Q4

REPORT INFORMATION
  Report Type: Report from Study
  Country: US (occurrence: US)
  Receive Date: 20201023
  Receipt Date: 20201023
  Transmission Date: 20210114
  Serious: Yes (Hospitalization, Other)
  Sender: FDA-Public Use
  Company Number: US-RECRO GAINESVILLE LLC-REPH-2020-000012

PATIENT
  Age: 14 Year
  Sex: Female
  Weight: 76 kg

DRUGS (1)
  1. VERAPAMIL HYDROCHLORIDE SUSTAINED RELEASE [Suspect]
     Active Substance: VERAPAMIL HYDROCHLORIDE
     Dosage: 2880 MILLIGRAM, ONE TIME DOSE
     Route: 048

REACTIONS (8)
  - Nodal rhythm [Recovered/Resolved]
  - Electrocardiogram PR prolongation [Recovered/Resolved]
  - Hypotension [Recovered/Resolved]
  - Atrioventricular block second degree [Recovered/Resolved]
  - Intentional overdose [Recovered/Resolved]
  - Supraventricular tachycardia [Recovered/Resolved]
  - Palpitations [Recovered/Resolved]
  - Atrioventricular block first degree [Recovered/Resolved]
